FAERS Safety Report 6839065-6 (Version None)
Quarter: 2010Q3

REPORT INFORMATION
  Report Type: 
  Country: None (occurrence: None)
  Receive Date: 20100714
  Receipt Date: 20100707
  Transmission Date: 20110219
  Serious: Yes (Other)
  Sender: FDA-Public Use
  Company Number: US-BIOGENIDEC-2010BI020820

PATIENT
  Age: 53 Year
  Sex: Female
  Weight: 68 kg

DRUGS (3)
  1. AVONEX [Suspect]
     Indication: MULTIPLE SCLEROSIS
     Route: 030
     Dates: start: 20020101, end: 20030101
  2. AVONEX [Suspect]
     Route: 030
     Dates: start: 20030101, end: 20080916
  3. AVONEX [Suspect]
     Route: 030
     Dates: start: 20081201

REACTIONS (5)
  - DEPRESSION [None]
  - DIZZINESS [None]
  - LUNG SQUAMOUS CELL CARCINOMA STAGE III [None]
  - PAIN IN EXTREMITY [None]
  - PARAESTHESIA [None]
